FAERS Safety Report 4320815-8 (Version None)
Quarter: 2004Q1

REPORT INFORMATION
  Report Type: 
  Country: None (occurrence: None)
  Receive Date: 20040322
  Receipt Date: 20020520
  Transmission Date: 20041129
  Serious: Yes (Hospitalization)
  Sender: FDA-Public Use
  Company Number: WAES 0205FRA00051

PATIENT
  Age: 67 Year
  Sex: Male

DRUGS (2)
  1. CORTICOSTEROIDS (UNSPECIFIED) [Concomitant]
     Indication: ASTHMA
     Route: 055
  2. SINGULAIR [Suspect]
     Indication: ASTHMA
     Route: 048
     Dates: end: 20020501

REACTIONS (2)
  - ASTHMA [None]
  - EOSINOPHILIA [None]
